FAERS Safety Report 25847284 (Version 1)
Quarter: 2025Q3

REPORT INFORMATION
  Report Type: Spontaneous
  Country: US (occurrence: None)
  Receive Date: 20250923
  Receipt Date: 20250923
  Transmission Date: 20251020
  Serious: No
  Sender: FDA-CTU
  Company Number: None

PATIENT
  Sex: Female

DRUGS (1)
  1. RINVOQ [Suspect]
     Active Substance: UPADACITINIB
     Indication: Colitis ulcerative
     Dosage: 45 MG DAILY ORAL
     Route: 048
     Dates: start: 20250828

REACTIONS (5)
  - Colitis [None]
  - Condition aggravated [None]
  - Fatigue [None]
  - Acne [None]
  - Pruritus [None]
